FAERS Safety Report 4674221-7 (Version None)
Quarter: 2005Q2

REPORT INFORMATION
  Report Type: 
  Country: None (occurrence: None)
  Receive Date: 20050524
  Receipt Date: 20050510
  Transmission Date: 20051028
  Serious: Yes (Other)
  Sender: FDA-Public Use
  Company Number: 2005074295

PATIENT
  Age: 52 Year
  Sex: Male
  Weight: 111.1313 kg

DRUGS (7)
  1. BEXTRA [Suspect]
     Indication: OSTEOARTHRITIS
     Dosage: 20 MG (20 MG, 1 IN 1 D), ORAL
     Route: 048
  2. CELEBREX [Suspect]
     Indication: OSTEOARTHRITIS
     Dosage: 200 MG (100 MG, 2 IN 1 D), ORAL
     Route: 048
  3. ATENOLOL /HYDROCHLOROTHIAZIDE (ATENOLOL, HYDROCHLOROTHIAZIDE) [Concomitant]
  4. LITHIUM CARBONATE [Concomitant]
  5. CHONDROITIN/GLUCOSAMIDE/METHYLSULFONYLMETHANE (CHRONDROITIN, GLUCOSAMI [Concomitant]
  6. CORAL CALCIUM (CALCIUM, MINERALS NOS) [Concomitant]
  7. FISH OIL (FISH OIL) [Concomitant]

REACTIONS (5)
  - DISEASE RECURRENCE [None]
  - DRUG EFFECT DECREASED [None]
  - DRUG INEFFECTIVE [None]
  - OSTEOARTHRITIS [None]
  - SELF-MEDICATION [None]
